FAERS Safety Report 24428148 (Version 1)
Quarter: 2024Q4

REPORT INFORMATION
  Report Type: Spontaneous
  Country: PL (occurrence: PL)
  Receive Date: 20241011
  Receipt Date: 20241011
  Transmission Date: 20250114
  Serious: Yes (Other)
  Sender: PFIZER
  Company Number: PL-ROCHE-10000064867

PATIENT
  Age: 64 Year
  Sex: Male
  Weight: 77.8 kg

DRUGS (34)
  1. RITUXIMAB [Suspect]
     Active Substance: RITUXIMAB
     Indication: Diffuse large B-cell lymphoma
     Dosage: ON 13-AUG-2024, HE RECEIVED HIS MOST RECENT DOSE OF RITUXIMAB (375 MG) PRIOR TO NEUTROPENIA
     Route: 042
     Dates: start: 20240611
  2. DOXORUBICIN HYDROCHLORIDE [Suspect]
     Active Substance: DOXORUBICIN HYDROCHLORIDE
     Indication: Diffuse large B-cell lymphoma
     Dosage: START DATE OF MOST RECENT DOSE OF STUDY DRUGPRIOR TO AE:49 MG
     Route: 042
     Dates: start: 20240611
  3. METHYLPREDNISOLONE [Suspect]
     Active Substance: METHYLPREDNISOLONE
     Dosage: ON 17-AUG-2024, HE RECEIVED HIS MOST RECENT DOSE OF METHYLPREDNISONE (100 MG) PRIOR TO NEUTROPENIA
     Route: 048
     Dates: start: 20240606
  4. PREDNISONE [Suspect]
     Active Substance: PREDNISONE
     Indication: Diffuse large B-cell lymphoma
     Dosage: START DATE OF MOST RECENT DOSE OF STUDY DRUGPRIOR TO AE/SAE:17-AUG-2024
     Route: 048
     Dates: start: 20240606
  5. PREDNISOLONE [Suspect]
     Active Substance: PREDNISOLONE
     Indication: Diffuse large B-cell lymphoma
     Dosage: UNK
  6. GLOFITAMAB [Suspect]
     Active Substance: GLOFITAMAB
     Indication: Diffuse large B-cell lymphoma
     Dosage: ON 16-AUG-2024, HE RECEIVED HIS MOST RECENT DOSE OF GLOFITAMAB (10 MG) PRIOR TO NEUTROPENIA.
     Route: 042
     Dates: start: 20240709
  7. POLATUZUMAB VEDOTIN [Suspect]
     Active Substance: POLATUZUMAB VEDOTIN
     Indication: Diffuse large B-cell lymphoma
     Dosage: ON 13-AUG-2024, HE RECEIVED HIS MOST RECENT DOSE OF POLATUZUMAB VEDOTIN (143 MG) PRIOR TO NEUTROPENI
     Route: 042
     Dates: start: 20240612
  8. CYCLOPHOSPHAMIDE [Suspect]
     Active Substance: CYCLOPHOSPHAMIDE
     Indication: Diffuse large B-cell lymphoma
     Dosage: ON 13-AUG-2024, HE RECEIVED HIS MOST RECENT DOSE OF CYCLOPHOSPHAMIDE (735 MG) PRIOR TO NEUTROPENIA.
     Route: 042
     Dates: start: 20240611
  9. LERCANIDIPINE [Concomitant]
     Active Substance: LERCANIDIPINE
     Indication: Myocardial ischaemia
     Dosage: 10 MG, 1X/DAY
     Route: 048
     Dates: start: 2018
  10. ENOXAPARIN SODIUM [Concomitant]
     Active Substance: ENOXAPARIN SODIUM
     Indication: Prophylaxis
     Dosage: GIVEN FOR PROPHYLAXIS IS YES
     Route: 058
     Dates: start: 20240605, end: 20240809
  11. FILGRASTIMUM [Concomitant]
     Indication: Prophylaxis
     Dosage: DRUG DOSE FIRST ADMINISTERED IS 1 AMPULEGIVEN FOR PROPHYLAXIS IS YES
     Route: 058
     Dates: start: 20240730, end: 20240809
  12. FILGRASTIMUM [Concomitant]
     Dosage: DRUG DOSE FIRST ADMINISTERED IS 1 AMPULEGIVEN FOR PROPHYLAXIS IS YES
     Route: 058
     Dates: start: 20240724, end: 20240729
  13. FILGRASTIMUM [Concomitant]
     Dosage: 1 DF, 1X/DAY
     Route: 058
     Dates: start: 20240814, end: 20240820
  14. DEXAMETHASONE [Concomitant]
     Active Substance: DEXAMETHASONE
     Dosage: 20 MG, AS NEEDED
     Dates: start: 20240709, end: 20240828
  15. LEVOFLOXACIN [Concomitant]
     Active Substance: LEVOFLOXACIN
     Indication: Prophylaxis
     Dosage: FREQ:.5 D;GIVEN FOR PROPHYLAXIS IS YES
     Route: 048
     Dates: start: 20240809, end: 20240815
  16. ONDANSETRON [Concomitant]
     Active Substance: ONDANSETRON
     Indication: Prophylaxis
     Dosage: GIVEN FOR PROPHYLAXIS IS YES
     Route: 042
     Dates: start: 20240723, end: 20240723
  17. ALLOPURINOL [Concomitant]
     Active Substance: ALLOPURINOL
     Indication: Prophylaxis
     Dosage: FREQ:.5 D;GIVEN FOR PROPHYLAXIS IS YES
     Route: 048
     Dates: start: 20240611
  18. ALLOPURINOL [Concomitant]
     Active Substance: ALLOPURINOL
     Dosage: GIVEN FOR PROPHYLAXIS IS YES
     Route: 048
     Dates: start: 20240809, end: 20240828
  19. OMEPRAZOLE [Concomitant]
     Active Substance: OMEPRAZOLE
     Indication: Gastritis prophylaxis
     Dosage: DRUG DOSE FIRST ADMINISTERED IS 1 AMPULEGIVEN FOR PROPHYLAXIS IS YES
     Route: 058
     Dates: start: 20240723, end: 20240727
  20. OMEPRAZOLE [Concomitant]
     Active Substance: OMEPRAZOLE
     Dosage: 40 MG, 1X/DAY
     Route: 048
     Dates: start: 20240809, end: 20240828
  21. ATORVASTATIN CALCIUM [Concomitant]
     Active Substance: ATORVASTATIN CALCIUM
     Indication: Myocardial ischaemia
     Dosage: 10 MG, 1X/DAY
     Route: 048
     Dates: start: 2024
  22. METFORMIN HYDROCHLORIDE [Concomitant]
     Active Substance: METFORMIN HYDROCHLORIDE
     Indication: Diabetes mellitus
     Dosage: FREQ:.5 D;
     Route: 048
     Dates: start: 2018
  23. ACETAMINOPHEN [Concomitant]
     Active Substance: ACETAMINOPHEN
     Dosage: 1000 MG, AS NEEDED
     Route: 048
     Dates: start: 20240611, end: 20240828
  24. POTASSIUM [Concomitant]
     Active Substance: POTASSIUM
     Dosage: UNK
     Route: 065
     Dates: start: 20240730, end: 20240809
  25. ACYCLOVIR [Concomitant]
     Active Substance: ACYCLOVIR
     Indication: Prophylaxis
     Dosage: FREQ:.5 D;GIVEN FOR PROPHYLAXIS IS YES
     Route: 048
  26. ACYCLOVIR [Concomitant]
     Active Substance: ACYCLOVIR
     Dosage: FREQ:.5 D;GIVEN FOR PROPHYLAXIS IS YES
     Route: 048
     Dates: start: 20240611
  27. MAGNESIUM [Concomitant]
     Active Substance: MAGNESIUM
     Dosage: UNK
     Route: 065
     Dates: start: 20240730, end: 20240809
  28. SITAGLIPTIN [Concomitant]
     Active Substance: SITAGLIPTIN
     Indication: Diabetes mellitus
     Dosage: 100 MG, 1X/DAY
     Route: 048
     Dates: start: 20240620
  29. EBIVOL [Concomitant]
     Indication: Myocardial ischaemia
     Dosage: 5 MG, 1X/DAY
     Route: 048
     Dates: start: 2009
  30. POTASSIUM CHLORIDE [Concomitant]
     Active Substance: POTASSIUM CHLORIDE
     Dosage: 391 MG, FREQ:.5 D
     Route: 048
     Dates: start: 20240716
  31. CANDEPRES HCT [Concomitant]
     Dosage: CANDESARTANUM CILEXETILUM 16 MG + HYDROCHLOROTHIAZIDUM 12.5 MG
     Route: 048
     Dates: start: 202404
  32. ASPIRIN [Concomitant]
     Active Substance: ASPIRIN
     Indication: Myocardial ischaemia
     Dosage: 75 MG, 1X/DAY
     Route: 048
  33. CLEMASTINUM [CLEMASTINE] [Concomitant]
     Dosage: 2 MG, AS NEEDED
     Route: 042
     Dates: start: 20240611, end: 20240828
  34. HUMAN RED BLOOD CELL [Concomitant]
     Active Substance: HUMAN RED BLOOD CELL
     Dosage: 1 IU, SINGLE
     Route: 042
     Dates: start: 202407, end: 20240809

REACTIONS (1)
  - Neutropenia [Recovered/Resolved]

NARRATIVE: CASE EVENT DATE: 20240820
